FAERS Safety Report 9761874 (Version 1)
Quarter: 2013Q4

REPORT INFORMATION
  Report Type: Spontaneous
  Country: US (occurrence: US)
  Receive Date: 20131216
  Receipt Date: 20131216
  Transmission Date: 20140711
  Serious: No
  Sender: FDA-Public Use
  Company Number: US-BIOGENIDEC-2013BI108555

PATIENT
  Age: 54 Year
  Sex: Female

DRUGS (1)
  1. TECFIDERA [Suspect]
     Indication: MULTIPLE SCLEROSIS
     Route: 048
     Dates: start: 201306, end: 20131025

REACTIONS (7)
  - Gastrooesophageal reflux disease [Unknown]
  - Tooth disorder [Unknown]
  - Bone loss [Unknown]
  - Cognitive disorder [Unknown]
  - Amnesia [Unknown]
  - Abdominal pain [Unknown]
  - Diarrhoea [Unknown]
